FAERS Safety Report 4281960-9 (Version None)
Quarter: 2004Q1

REPORT INFORMATION
  Report Type: 
  Country: None (occurrence: None)
  Receive Date: 20040128
  Receipt Date: 20040126
  Transmission Date: 20041129
  Serious: Yes (Death)
  Sender: FDA-Public Use
  Company Number: USA-2003-0007769

PATIENT
  Age: 40 Year
  Sex: Male

DRUGS (2)
  1. OXYCODONE HCL [Suspect]
  2. HYDROCODONE BITARTRATE [Suspect]

REACTIONS (3)
  - CHEST INJURY [None]
  - COMPLETED SUICIDE [None]
  - GUN SHOT WOUND [None]
